FAERS Safety Report 18877507 (Version 1)
Quarter: 2021Q1

REPORT INFORMATION
  Report Type: Spontaneous
  Country: US (occurrence: US)
  Receive Date: 20210210
  Receipt Date: 20210210
  Transmission Date: 20210420
  Serious: Yes (Other)
  Sender: FDA-Public Use
  Company Number: None

PATIENT
  Age: 14 Year
  Sex: Male
  Weight: 31.5 kg

DRUGS (5)
  1. RENZO^S PICKY EATER VITAMINS [Concomitant]
  2. CLONIDINE. [Concomitant]
     Active Substance: CLONIDINE
  3. HUMATROPE [Concomitant]
     Active Substance: SOMATROPIN
  4. MILK OF MAGNESIA [Concomitant]
     Active Substance: MAGNESIUM HYDROXIDE
  5. CYPROHEPTADINE. [Suspect]
     Active Substance: CYPROHEPTADINE
     Indication: VOMITING
     Dosage: ?          QUANTITY:10 ML;?
     Route: 048
     Dates: start: 20210126, end: 20210210

REACTIONS (3)
  - Aggression [None]
  - Nervousness [None]
  - Abnormal behaviour [None]

NARRATIVE: CASE EVENT DATE: 20210209
